FAERS Safety Report 6543818-1 (Version None)
Quarter: 2010Q1

REPORT INFORMATION
  Report Type: 
  Country: None (occurrence: None)
  Receive Date: 20100120
  Receipt Date: 20100112
  Transmission Date: 20100710
  Serious: No
  Sender: FDA-Public Use
  Company Number: US-B.I. PHARMACEUTICALS,INC./RIDGEFIELD-2009-BP-14032BP

PATIENT
  Age: 94 Year
  Sex: Male
  Weight: 81.7 kg

DRUGS (6)
  1. AGGRENOX [Suspect]
     Indication: TRANSIENT ISCHAEMIC ATTACK
     Route: 048
     Dates: start: 20090201, end: 20091202
  2. SIMVASTATIN [Concomitant]
     Indication: BLOOD CHOLESTEROL INCREASED
  3. METOPROLOL [Concomitant]
     Indication: HYPERTENSION
  4. ARICEPT [Concomitant]
     Indication: MEMORY IMPAIRMENT
  5. NAMENDA [Concomitant]
     Indication: MEMORY IMPAIRMENT
  6. FUROSEMIDE [Concomitant]

REACTIONS (3)
  - CHOKING [None]
  - DYSPHAGIA [None]
  - FOREIGN BODY [None]
